FAERS Safety Report 6362227-1 (Version None)
Quarter: 2009Q3

REPORT INFORMATION
  Report Type: 
  Country: None (occurrence: None)
  Receive Date: 20090918
  Receipt Date: 20090622
  Transmission Date: 20100115
  Serious: No
  Sender: FDA-Public Use
  Company Number: US-ABBOTT-07P-163-0355945-00

PATIENT
  Sex: Female
  Weight: 74.91 kg

DRUGS (4)
  1. HUMIRA [Suspect]
     Indication: RHEUMATOID ARTHRITIS
     Route: 058
     Dates: start: 20060301, end: 20060801
  2. HUMIRA [Suspect]
     Route: 058
     Dates: start: 20060801, end: 20070113
  3. HUMIRA [Suspect]
     Dosage: PEN
     Route: 058
     Dates: start: 20070113
  4. HUMIRA [Suspect]
     Indication: RHEUMATOID ARTHRITIS
     Route: 058
     Dates: start: 20070113

REACTIONS (4)
  - DRUG INEFFECTIVE [None]
  - INCORRECT DOSE ADMINISTERED [None]
  - MUSCULOSKELETAL STIFFNESS [None]
  - PAIN [None]
